FAERS Safety Report 25020964 (Version 3)
Quarter: 2025Q1

REPORT INFORMATION
  Report Type: Spontaneous
  Country: FR (occurrence: FR)
  Receive Date: 20250227
  Receipt Date: 20250317
  Transmission Date: 20250408
  Serious: Yes (Death, Hospitalization, Other)
  Sender: BRISTOL-MYERS SQUIBB COMPANY
  Company Number: None

PATIENT
  Age: 64 Year
  Sex: Female

DRUGS (12)
  1. INREBIC [Suspect]
     Active Substance: FEDRATINIB HYDROCHLORIDE
     Indication: Hairy cell leukaemia
     Dosage: 2 DF, QD
     Route: 048
     Dates: start: 202411, end: 20250205
  2. METOCLOPRAMIDE HYDROCHLORIDE [Suspect]
     Active Substance: METOCLOPRAMIDE HYDROCHLORIDE
     Indication: Vomiting
     Route: 048
     Dates: end: 20250205
  3. TRAMADOL HYDROCHLORIDE [Suspect]
     Active Substance: TRAMADOL HYDROCHLORIDE
     Indication: Pain
     Dosage: 200 MG, QD
     Route: 048
     Dates: end: 20250205
  4. SPIRONOLACTONE [Suspect]
     Active Substance: SPIRONOLACTONE
     Indication: Hypertension
     Dosage: 25 MG, QD
     Route: 048
     Dates: end: 20250205
  5. LEVOTHYROXINE [Suspect]
     Active Substance: LEVOTHYROXINE
     Indication: Thyroid disorder
     Dosage: 175 UG, QD
     Route: 048
     Dates: end: 20250205
  6. CALCIUM CARBONATE\SODIUM ALGINATE\SODIUM BICARBONATE [Suspect]
     Active Substance: CALCIUM CARBONATE\SODIUM ALGINATE\SODIUM BICARBONATE
     Indication: Vomiting
     Route: 048
     Dates: end: 20250205
  7. VALACYCLOVIR HYDROCHLORIDE [Suspect]
     Active Substance: VALACYCLOVIR HYDROCHLORIDE
     Indication: Prophylaxis
     Dosage: 1000 MG, QD
     Route: 048
     Dates: end: 20250205
  8. LERCANIDIPINE HYDROCHLORIDE [Suspect]
     Active Substance: LERCANIDIPINE HYDROCHLORIDE
     Indication: Hypertension
     Dosage: 20 MG, QD
     Route: 048
     Dates: end: 20250205
  9. SPAGULAX [Suspect]
     Active Substance: HERBALS\PLANTAGO OVATA SEED
     Indication: Constipation
     Dosage: 1 DF, QD
     Route: 048
     Dates: start: 20250114, end: 20250205
  10. POLYETHYLENE GLYCOL 4000 [Suspect]
     Active Substance: POLYETHYLENE GLYCOL 4000
     Indication: Vomiting
     Dosage: 2 DF, QD
     Route: 048
     Dates: end: 20250205
  11. CANRENOATE POTASSIUM [Suspect]
     Active Substance: CANRENOATE POTASSIUM
     Indication: Hypertension
     Route: 048
     Dates: end: 20250205
  12. PRIMPERAN [Suspect]
     Active Substance: METOCLOPRAMIDE HYDROCHLORIDE
     Indication: Vomiting
     Route: 048
     Dates: end: 20250205

REACTIONS (6)
  - Hypokalaemia [Fatal]
  - Hypocalcaemia [Fatal]
  - Diarrhoea [Fatal]
  - Vomiting [Fatal]
  - Constipation [Recovered/Resolved]
  - Off label use [Unknown]

NARRATIVE: CASE EVENT DATE: 20241201
